FAERS Safety Report 15095704 (Version 1)
Quarter: 2018Q3

REPORT INFORMATION
  Report Type: Spontaneous
  Country: IT (occurrence: IT)
  Receive Date: 20180702
  Receipt Date: 20180702
  Transmission Date: 20181010
  Serious: Yes (Other)
  Sender: FDA-Public Use
  Company Number: IT-AMGEN-ITASP2018086837

PATIENT
  Age: 74 Year
  Sex: Female
  Weight: 65 kg

DRUGS (13)
  1. XGEVA [Suspect]
     Active Substance: DENOSUMAB
     Indication: METASTASES TO BONE
     Dosage: 120 MG, UNK (CYCLICAL)
     Route: 058
     Dates: start: 20150413
  2. ATORVASTATIN [Concomitant]
     Active Substance: ATORVASTATIN
  3. LASIX [Concomitant]
     Active Substance: FUROSEMIDE
  4. FASLODEX [Concomitant]
     Active Substance: FULVESTRANT
  5. ZYLORIC [Concomitant]
     Active Substance: ALLOPURINOL
  6. DIBASE [Concomitant]
     Active Substance: CHOLECALCIFEROL
  7. LYRICA [Concomitant]
     Active Substance: PREGABALIN
  8. ZOLEDRONIC ACID SANDOZ [Concomitant]
     Dosage: UNK
  9. SELES BETA [Concomitant]
     Active Substance: ATENOLOL
  10. EUTIROX [Concomitant]
     Active Substance: LEVOTHYROXINE SODIUM
  11. NOVONORM [Concomitant]
     Active Substance: REPAGLINIDE
  12. TRIATEC [Concomitant]
  13. LANTUS [Concomitant]
     Active Substance: INSULIN GLARGINE

REACTIONS (1)
  - Osteonecrosis of jaw [Recovering/Resolving]

NARRATIVE: CASE EVENT DATE: 20170301
